FAERS Safety Report 10519785 (Version 1)
Quarter: 2014Q4

REPORT INFORMATION
  Report Type: Spontaneous
  Country: US (occurrence: None)
  Receive Date: 20141014
  Receipt Date: 20141014
  Transmission Date: 20150528
  Serious: Yes (Hospitalization)
  Sender: FDA-Public Use
  Company Number: None

PATIENT
  Age: 65 Year
  Sex: Male
  Weight: 104.8 kg

DRUGS (1)
  1. DENOSUMAB [Suspect]
     Active Substance: DENOSUMAB
     Dosage: ML    SQ
     Route: 058
     Dates: start: 20140907

REACTIONS (2)
  - Hypocalcaemia [None]
  - Paraesthesia [None]

NARRATIVE: CASE EVENT DATE: 20140907
